FAERS Safety Report 5937918-4 (Version None)
Quarter: 2008Q4

REPORT INFORMATION
  Report Type: 
  Country: None (occurrence: None)
  Receive Date: 20081031
  Receipt Date: 20081021
  Transmission Date: 20090506
  Serious: Yes (Life-Threatening)
  Sender: FDA-Public Use
  Company Number: FR-PFIZER INC-2008074952

PATIENT
  Sex: Female

DRUGS (7)
  1. VFEND [Suspect]
     Indication: BRONCHOPULMONARY ASPERGILLOSIS
     Route: 042
     Dates: start: 20080326, end: 20080402
  2. TRIFLUCAN [Suspect]
     Route: 042
     Dates: start: 20080322, end: 20080327
  3. NIMBEX [Suspect]
     Route: 042
     Dates: start: 20080313, end: 20080403
  4. KETAMINE HCL [Suspect]
     Route: 042
     Dates: start: 20080313, end: 20080402
  5. TIENAM [Suspect]
     Route: 042
     Dates: start: 20080321, end: 20080402
  6. NEXIUM [Suspect]
     Dosage: TEXT:1 DF
     Route: 048
     Dates: start: 20080327, end: 20080404
  7. ALL OTHER THERAPEUTIC PRODUCTS [Concomitant]
     Dates: end: 20080307

REACTIONS (1)
  - BRADYCARDIA [None]
